FAERS Safety Report 7155108-7 (Version None)
Quarter: 2010Q4

REPORT INFORMATION
  Report Type: 
  Country: None (occurrence: None)
  Receive Date: 20101214
  Receipt Date: 20101018
  Transmission Date: 20110411
  Serious: No
  Sender: FDA-Public Use
  Company Number: US-AMGEN-KDL375647

PATIENT

DRUGS (3)
  1. ENBREL [Suspect]
     Indication: PRODUCT USED FOR UNKNOWN INDICATION
     Dosage: 25 MG, 2 TIMES/WK
     Route: 058
  2. AMITRIPTYLINE [Concomitant]
     Dosage: 10 MG, UNK
     Route: 048
  3. ACETAMINOPHEN [Concomitant]
     Dosage: 500 MG, UNK
     Route: 048

REACTIONS (2)
  - HYPERSENSITIVITY [None]
  - SINUSITIS [None]
